FAERS Safety Report 7040534-7 (Version None)
Quarter: 2010Q4

REPORT INFORMATION
  Report Type: 
  Country: None (occurrence: None)
  Receive Date: 20101008
  Receipt Date: 20101008
  Transmission Date: 20110411
  Serious: Yes (Hospitalization, Other)
  Sender: FDA-Public Use
  Company Number: None

PATIENT
  Sex: Female
  Weight: 81.8 kg

DRUGS (1)
  1. YASMIN [Suspect]
     Indication: POLYCYSTIC OVARIES
     Dosage: 3 MG 1 PILL ONCE A DAY ORAL-047
     Route: 048
     Dates: start: 20020101, end: 20070101

REACTIONS (13)
  - BLOOD PRESSURE ABNORMAL [None]
  - CHOLECYSTITIS INFECTIVE [None]
  - CHOLELITHIASIS [None]
  - DEHYDRATION [None]
  - GASTRIC DISORDER [None]
  - IMPAIRED GASTRIC EMPTYING [None]
  - INFECTION [None]
  - INFLAMMATION [None]
  - LIVER DISORDER [None]
  - MUSCULOSKELETAL DISORDER [None]
  - OEDEMA PERIPHERAL [None]
  - PAIN [None]
  - VOMITING [None]
